FAERS Safety Report 11427070 (Version 2)
Quarter: 2015Q4

REPORT INFORMATION
  Report Type: Report from Study
  Country: TH (occurrence: TH)
  Receive Date: 20150827
  Receipt Date: 20151020
  Transmission Date: 20160304
  Serious: Yes (Death, Hospitalization, Congenital Anomaly)
  Sender: FDA-Public Use
  Company Number: TH-GILEAD-2015-0169450

PATIENT
  Age: 0 Day
  Sex: Male
  Weight: 1.92 kg

DRUGS (3)
  1. OBIMIN AZ [Concomitant]
     Indication: PRODUCT USED FOR UNKNOWN INDICATION
     Dosage: 1 DF, QD
     Route: 064
     Dates: start: 20150310, end: 20150824
  2. CALCIUM CARBONATE. [Concomitant]
     Active Substance: CALCIUM CARBONATE
     Indication: PRODUCT USED FOR UNKNOWN INDICATION
     Dosage: 1 DF, QD
     Route: 064
     Dates: start: 20150310, end: 20150824
  3. BLINDED TENOFOVIR DISOPROXIL FUMARATE [Suspect]
     Active Substance: TENOFOVIR DISOPROXIL FUMARATE
     Indication: CHRONIC HEPATITIS B
     Dosage: 300 MG, QD
     Route: 064
     Dates: start: 20150630, end: 20150824

REACTIONS (1)
  - Congenital anomaly [Fatal]

NARRATIVE: CASE EVENT DATE: 20150824
